FAERS Safety Report 7151572-8 (Version None)
Quarter: 2010Q4

REPORT INFORMATION
  Report Type: 
  Country: None (occurrence: None)
  Receive Date: 20101210
  Receipt Date: 20101208
  Transmission Date: 20110411
  Serious: Yes (Death)
  Sender: FDA-Public Use
  Company Number: MY-PFIZER INC-2010166490

PATIENT
  Age: 62 Year
  Sex: Male

DRUGS (3)
  1. ZITHROMAX [Suspect]
     Indication: PNEUMONIA
     Dosage: 500 MG, 1X/DAY
     Route: 042
     Dates: start: 20100107
  2. RANITIDINE [Concomitant]
  3. FRUSEMIDE [Concomitant]

REACTIONS (1)
  - ARRHYTHMIA [None]
